FAERS Safety Report 24220395 (Version 1)
Quarter: 2024Q3

REPORT INFORMATION
  Report Type: Other
  Country: PT (occurrence: PT)
  Receive Date: 20240818
  Receipt Date: 20240818
  Transmission Date: 20241017
  Serious: Yes (Other)
  Sender: DEXCEL
  Company Number: PT-DEXPHARM-2024-2763

PATIENT
  Age: 80 Year
  Sex: Female

DRUGS (1)
  1. DONEPEZIL [Suspect]
     Active Substance: DONEPEZIL\DONEPEZIL HYDROCHLORIDE
     Indication: Dementia

REACTIONS (2)
  - Long QT syndrome [Recovered/Resolved]
  - Stress cardiomyopathy [Unknown]
